FAERS Safety Report 8490449-2 (Version None)
Quarter: 2012Q3

REPORT INFORMATION
  Report Type: 
  Country: None (occurrence: None)
  Receive Date: 20120705
  Receipt Date: 20120625
  Transmission Date: 20120928
  Serious: Yes (Other)
  Sender: FDA-Public Use
  Company Number: ZA-CELGENEUS-143-21880-12060454

PATIENT
  Sex: Male
  Weight: 74 kg

DRUGS (6)
  1. REVLIMID [Suspect]
     Indication: MULTIPLE MYELOMA
     Dosage: 25 MILLIGRAM
     Route: 048
     Dates: start: 20120103
  2. ZOMETA [Concomitant]
     Indication: BONE DISORDER
     Route: 041
     Dates: start: 20120102, end: 20120525
  3. ASPIRIN [Concomitant]
     Indication: THROMBOSIS PROPHYLAXIS
     Dosage: 1 TABLET
     Route: 048
     Dates: start: 20120102
  4. DECADRON [Concomitant]
     Indication: MULTIPLE MYELOMA
     Route: 048
     Dates: start: 20120102, end: 20120525
  5. OMEPRAZOLE [Concomitant]
     Indication: PROPHYLAXIS
     Dosage: 20 MILLIGRAM
     Route: 048
     Dates: start: 20120102
  6. NYSTATIN [Concomitant]
     Indication: PROPHYLAXIS
     Dosage: 2 MILLILITER
     Route: 065
     Dates: start: 20120102

REACTIONS (2)
  - ERYTHEMA NODOSUM [None]
  - TUBERCULOSIS [None]
